FAERS Safety Report 14552742 (Version 2)
Quarter: 2018Q2

REPORT INFORMATION
  Report Type: Spontaneous
  Country: US (occurrence: US)
  Receive Date: 20180220
  Receipt Date: 20180501
  Transmission Date: 20180711
  Serious: Yes (Other)
  Sender: FDA-Public Use
  Company Number: US-BAYER-2018-029838

PATIENT
  Age: 73 Year
  Sex: Male

DRUGS (18)
  1. LASIX [Concomitant]
     Active Substance: FUROSEMIDE
     Dosage: 20 MG
     Route: 048
  2. DECADRON [Concomitant]
     Active Substance: DEXAMETHASONE
     Dosage: 4 MG
     Route: 048
  3. ALBUTEROL W/IPRATROPIUM [Concomitant]
     Active Substance: ALBUTEROL\IPRATROPIUM
     Dosage: 0.5 MG-3 MG
  4. COMPAZINE [Concomitant]
     Active Substance: PROCHLORPERAZINE MALEATE
     Dosage: 10 MG
     Route: 048
  5. PRILOSEC [Concomitant]
     Active Substance: OMEPRAZOLE MAGNESIUM
     Dosage: 40 MG
     Route: 048
  6. XOFIGO [Suspect]
     Active Substance: RADIUM RA-223 DICHLORIDE
     Indication: METASTASES TO BONE
     Dosage: 117 MILICURIES/6.64 ML
     Route: 042
     Dates: start: 20180130, end: 20180130
  7. CARTIA XT [Concomitant]
     Active Substance: DILTIAZEM HYDROCHLORIDE
     Dosage: 240 MG
     Route: 048
  8. GLUCOPHAGE [Concomitant]
     Active Substance: METFORMIN HYDROCHLORIDE
     Dosage: 500 MG
     Route: 048
  9. XOFIGO [Suspect]
     Active Substance: RADIUM RA-223 DICHLORIDE
     Indication: PROSTATE CANCER STAGE IV
     Dosage: 123 MCI
     Route: 042
     Dates: start: 20171226, end: 20171226
  10. XOFIGO [Suspect]
     Active Substance: RADIUM RA-223 DICHLORIDE
     Indication: PROSTATE CANCER STAGE IV
     Dosage: 111.31 MCI
     Route: 042
     Dates: start: 20180327, end: 20180327
  11. NEURONTIN [Concomitant]
     Active Substance: GABAPENTIN
     Dosage: 300 MG
     Route: 048
  12. VITAMIN D3 [Concomitant]
     Active Substance: CHOLECALCIFEROL
     Dosage: 1000 U
     Route: 048
  13. POLYCARBOPHIL CALCIUM [Concomitant]
     Active Substance: CALCIUM POLYCARBOPHIL
     Route: 048
  14. PROVENTIL [Concomitant]
     Active Substance: ALBUTEROL
     Dosage: 90 MCG
  15. NITROSTAT [Concomitant]
     Active Substance: NITROGLYCERIN
     Dosage: 0.4 MG
     Route: 060
  16. XOFIGO [Suspect]
     Active Substance: RADIUM RA-223 DICHLORIDE
     Indication: PROSTATE CANCER STAGE IV
     Dosage: 107.1 MCI
     Route: 042
     Dates: start: 20180227, end: 20180227
  17. ASPIRIN. [Concomitant]
     Active Substance: ASPIRIN
     Dosage: 81 MG
     Route: 048
  18. ZOFRAN [Concomitant]
     Active Substance: ONDANSETRON HYDROCHLORIDE
     Dosage: 8 MG
     Route: 048

REACTIONS (3)
  - Testicular pain [Recovered/Resolved]
  - Prostate cancer [None]
  - Testicular oedema [None]

NARRATIVE: CASE EVENT DATE: 20180210
